FAERS Safety Report 8481269-3 (Version None)
Quarter: 2012Q3

REPORT INFORMATION
  Report Type: 
  Country: None (occurrence: None)
  Receive Date: 20120702
  Receipt Date: 20120621
  Transmission Date: 20120928
  Serious: Yes (Hospitalization)
  Sender: FDA-Public Use
  Company Number: FR-PFIZER INC-2012154305

PATIENT
  Age: 64 Year
  Sex: Male

DRUGS (7)
  1. RAMIPRIL [Suspect]
     Indication: MYOCARDIAL ISCHAEMIA
     Dosage: 5 MG, 1X/DAY
     Route: 048
  2. SERTRALINE HYDROCHLORIDE [Suspect]
     Indication: ALCOHOL REHABILITATION
     Dosage: 50 MG, 2X/DAY
     Route: 048
     Dates: start: 20120521, end: 20120612
  3. ASPIRIN [Suspect]
     Dosage: 160 MG, 1X/DAY
     Route: 048
  4. TOPIRAMATE [Suspect]
     Indication: ALCOHOL REHABILITATION
     Dosage: 100 MG, 2X/DAY
     Route: 048
     Dates: start: 20120521, end: 20120607
  5. AMLODIPINE BESYLATE [Suspect]
     Indication: MYOCARDIAL ISCHAEMIA
     Dosage: 10 MG, 1X/DAY
     Route: 048
  6. NALTREXONE HYDROCHLORIDE [Suspect]
     Indication: ALCOHOL REHABILITATION
     Dosage: 50 MG, 1X/DAY
     Route: 048
     Dates: start: 20120601, end: 20120607
  7. ACAMPROSATE CALCIUM [Suspect]
     Dosage: 333 MG, 2X/DAY
     Route: 048
     Dates: start: 20120521, end: 20120601

REACTIONS (2)
  - CYTOLYTIC HEPATITIS [None]
  - DERMATITIS EXFOLIATIVE [None]
